FAERS Safety Report 4751920-X (Version None)
Quarter: 2005Q3

REPORT INFORMATION
  Report Type: 
  Country: None (occurrence: None)
  Receive Date: 20050824
  Receipt Date: 20050718
  Transmission Date: 20060218
  Serious: Yes (Hospitalization)
  Sender: FDA-Public Use
  Company Number: US-MERCK-0507USA02335

PATIENT
  Age: 38 Year
  Sex: Female
  Weight: 81 kg

DRUGS (4)
  1. VIOXX [Suspect]
     Indication: WRIST FRACTURE
     Route: 048
     Dates: start: 20001201, end: 20020901
  2. VIOXX [Suspect]
     Indication: BACK PAIN
     Route: 048
     Dates: start: 20001201, end: 20020901
  3. MOTRIN [Concomitant]
     Route: 065
  4. TYLENOL [Concomitant]
     Route: 065

REACTIONS (2)
  - MYOCARDIAL INFARCTION [None]
  - PANIC ATTACK [None]
